FAERS Safety Report 7465313-8 (Version None)
Quarter: 2011Q2

REPORT INFORMATION
  Report Type: 
  Country: None (occurrence: None)
  Receive Date: 20110509
  Receipt Date: 20101018
  Transmission Date: 20111010
  Serious: No
  Sender: FDA-Public Use
  Company Number: US-SANOFI-AVENTIS-2010SA063786

PATIENT
  Age: 77 Year
  Sex: Female

DRUGS (2)
  1. LANTUS [Suspect]
     Indication: TYPE 2 DIABETES MELLITUS
     Dosage: 12 UNITS DURING DAY AND 20 UNITS AT BED TIME.
     Route: 058
     Dates: start: 20090101
  2. APIDRA [Suspect]
     Indication: TYPE 2 DIABETES MELLITUS
     Dosage: DOSE:12 UNIT(S)
     Route: 058
     Dates: start: 20090101

REACTIONS (4)
  - EYE DISORDER [None]
  - DRUG DOSE OMISSION [None]
  - MEMORY IMPAIRMENT [None]
  - HYPERGLYCAEMIA [None]
